FAERS Safety Report 9753921 (Version 3)
Quarter: 2014Q1

REPORT INFORMATION
  Report Type: Report from Study
  Country: US (occurrence: US)
  Receive Date: 20131213
  Receipt Date: 20140122
  Transmission Date: 20141002
  Serious: Yes (Hospitalization)
  Sender: FDA-Public Use
  Company Number: US-JNJFOC-20131205457

PATIENT
  Age: 19 Year
  Sex: Male
  Weight: 63 kg

DRUGS (5)
  1. REMICADE [Suspect]
     Indication: INFLAMMATORY BOWEL DISEASE
     Route: 042
     Dates: start: 20130504, end: 20130515
  2. ABILIFY [Concomitant]
     Route: 065
  3. PROBIOTICS [Concomitant]
     Indication: INFLAMMATORY BOWEL DISEASE
     Route: 065
  4. PROZAC [Concomitant]
     Route: 065
  5. IMODIUM [Concomitant]
     Route: 065

REACTIONS (1)
  - Diarrhoea [Recovered/Resolved]
